FAERS Safety Report 18221764 (Version 1)
Quarter: 2020Q3

REPORT INFORMATION
  Report Type: Spontaneous
  Country: US (occurrence: US)
  Receive Date: 20200902
  Receipt Date: 20200902
  Transmission Date: 20201103
  Serious: No
  Sender: FDA-Public Use
  Company Number: US-EMD SERONO-9182440

PATIENT
  Sex: Female

DRUGS (1)
  1. GONAL?F [Suspect]
     Active Substance: FOLLITROPIN
     Indication: ASSISTED REPRODUCTIVE TECHNOLOGY
     Dosage: PEN
     Route: 058

REACTIONS (3)
  - Metrorrhagia [Unknown]
  - Therapy interrupted [Unknown]
  - Device defective [Unknown]
